FAERS Safety Report 6413680-6 (Version None)
Quarter: 2009Q4

REPORT INFORMATION
  Report Type: 
  Country: None (occurrence: None)
  Receive Date: 20091026
  Receipt Date: 20090826
  Transmission Date: 20100525
  Serious: No
  Sender: FDA-Public Use
  Company Number: US-BAYER-200931686NA

PATIENT
  Age: 38 Year
  Sex: Female

DRUGS (1)
  1. YAZ [Suspect]
     Indication: MENORRHAGIA
     Dosage: TOTAL DAILY DOSE: 1 DF
     Route: 048
     Dates: start: 20081001, end: 20090821

REACTIONS (10)
  - ANXIETY [None]
  - CHEST PAIN [None]
  - DEPRESSION [None]
  - DRY EYE [None]
  - DYSMENORRHOEA [None]
  - HYPOAESTHESIA [None]
  - MENORRHAGIA [None]
  - MENSTRUATION DELAYED [None]
  - PALPITATIONS [None]
  - SLEEP DISORDER [None]
